FAERS Safety Report 6212211-3 (Version None)
Quarter: 2009Q2

REPORT INFORMATION
  Report Type: 
  Country: None (occurrence: None)
  Receive Date: 20090602
  Receipt Date: 20090525
  Transmission Date: 20091009
  Serious: Yes (Other)
  Sender: FDA-Public Use
  Company Number: PHHY2009JP20322

PATIENT
  Sex: Male

DRUGS (9)
  1. DIOVAN T30230+TAB+HY [Suspect]
     Dosage: 80 MG, QD
     Route: 048
     Dates: start: 20071104, end: 20071216
  2. DIOVAN T30230+TAB+HY [Suspect]
     Dosage: 80 MG, BID
     Route: 048
     Dates: start: 20071217
  3. VOLTAREN [Suspect]
     Dosage: UNK
     Route: 054
  4. NATRILIX [Concomitant]
     Indication: HYPERTENSION
     Dosage: 0.5 MG, UNK
     Route: 048
     Dates: start: 20071023
  5. NORVASC [Concomitant]
     Indication: HYPERTENSION
     Dosage: 10 MG, UNK
     Route: 048
     Dates: start: 20071023, end: 20080125
  6. ADALAT CC [Concomitant]
     Indication: HYPERTENSION
     Dosage: UNK
     Route: 048
     Dates: start: 20081002, end: 20081030
  7. INHIBACE [Concomitant]
     Indication: HYPERTENSION
     Dosage: 1 MG, UNK
     Route: 048
     Dates: start: 20081031
  8. ALLOPURINOL [Concomitant]
     Dosage: 200 MG, UNK
     Route: 048
     Dates: start: 20080125
  9. PARIET [Concomitant]
     Dosage: 20 MG, UNK
     Route: 048
     Dates: start: 20080219, end: 20081030

REACTIONS (5)
  - BLOOD CREATININE INCREASED [None]
  - BLOOD UREA INCREASED [None]
  - GASTRIC ULCER [None]
  - GASTROINTESTINAL HAEMORRHAGE [None]
  - GOUT [None]
